FAERS Safety Report 6084387-2 (Version None)
Quarter: 2009Q1

REPORT INFORMATION
  Report Type: 
  Country: None (occurrence: None)
  Receive Date: 20090219
  Receipt Date: 20090217
  Transmission Date: 20090719
  Serious: Yes (Death, Hospitalization)
  Sender: FDA-Public Use
  Company Number: A0769187A

PATIENT
  Age: 49 Year
  Sex: Female
  Weight: 80.7 kg

DRUGS (30)
  1. MELPHALAN [Suspect]
     Indication: MULTIPLE MYELOMA
     Dosage: 200MGM2 PER DAY
     Route: 042
     Dates: start: 20081221, end: 20081221
  2. MELPHALAN [Suspect]
     Dosage: 200MGM2 PER DAY
     Route: 042
     Dates: start: 20080925, end: 20080925
  3. VELCADE [Suspect]
     Indication: MULTIPLE MYELOMA
     Dosage: 1MGM2 PER DAY
     Route: 042
     Dates: start: 20080712, end: 20080817
  4. DEXAMETHASONE TAB [Suspect]
     Indication: MULTIPLE MYELOMA
     Dosage: 40MG PER DAY
     Route: 048
     Dates: start: 20080715, end: 20081224
  5. THALIDOMIDE [Suspect]
     Indication: MULTIPLE MYELOMA
     Route: 048
     Dates: start: 20080715
  6. THALIDOMIDE [Suspect]
     Route: 048
     Dates: start: 20081207
  7. CISPLATIN [Suspect]
     Indication: MULTIPLE MYELOMA
     Route: 042
     Dates: start: 20080715
  8. CISPLATIN [Suspect]
     Route: 042
     Dates: start: 20080817
  9. ADRIAMYCIN PFS [Suspect]
     Indication: MULTIPLE MYELOMA
     Route: 042
     Dates: start: 20080715
  10. ADRIAMYCIN PFS [Suspect]
     Route: 042
     Dates: start: 20080817
  11. CYCLOPHOSPHAMIDE [Suspect]
     Indication: MULTIPLE MYELOMA
     Route: 042
     Dates: start: 20080715
  12. CYCLOPHOSPHAMIDE [Suspect]
     Route: 042
     Dates: start: 20080817
  13. ETOPOSIDE [Suspect]
     Indication: MULTIPLE MYELOMA
     Route: 042
     Dates: start: 20080715
  14. ETOPOSIDE [Suspect]
     Route: 042
     Dates: start: 20080817
  15. PRIMAXIN [Concomitant]
     Dates: start: 20090107
  16. TAMIFLU [Concomitant]
  17. ACYCLOVIR [Concomitant]
  18. PROTONIX [Concomitant]
  19. SYNTHROID [Concomitant]
  20. AMBIEN [Concomitant]
  21. PROMETHAZINE [Concomitant]
  22. ATIVAN [Concomitant]
  23. OXYCODONE HCL [Concomitant]
  24. XANAX [Concomitant]
  25. MEGACE [Concomitant]
  26. BENTYL [Concomitant]
  27. ALDACTONE [Concomitant]
  28. POTASSIUM CHLORIDE [Concomitant]
  29. HEPARIN [Concomitant]
  30. GUAIFENESIN [Concomitant]

REACTIONS (9)
  - CEREBRAL INFARCTION [None]
  - DEATH [None]
  - DEEP VEIN THROMBOSIS [None]
  - HYPOXIA [None]
  - LABILE BLOOD PRESSURE [None]
  - LUNG INFILTRATION [None]
  - PYREXIA [None]
  - RESPIRATORY FAILURE [None]
  - RESPIRATORY SYNCYTIAL VIRUS INFECTION [None]
